FAERS Safety Report 6004353-2 (Version None)
Quarter: 2008Q4

REPORT INFORMATION
  Report Type: 
  Country: None (occurrence: None)
  Receive Date: 20081216
  Receipt Date: 20081204
  Transmission Date: 20090506
  Serious: Yes (Other)
  Sender: FDA-Public Use
  Company Number: US-WYE-H05107108

PATIENT
  Sex: Female

DRUGS (4)
  1. PREMPRO [Suspect]
     Dosage: UNKNOWN
     Route: 065
  2. PROVERA [Suspect]
     Dosage: UNKNOWN
     Route: 065
  3. MEDROXYPROGESTERONE ACETATE [Suspect]
     Dosage: UNKNOWN
     Route: 065
  4. OGEN [Suspect]
     Dosage: UNKNOWN
     Route: 065

REACTIONS (1)
  - BREAST CANCER [None]
